FAERS Safety Report 4891372-2 (Version None)
Quarter: 2006Q1

REPORT INFORMATION
  Report Type: 
  Country: None (occurrence: None)
  Receive Date: 20060125
  Receipt Date: 20060116
  Transmission Date: 20060701
  Serious: Yes (Hospitalization)
  Sender: FDA-Public Use
  Company Number: FR-AVENTIS-200610207FR

PATIENT
  Age: 86 Year
  Sex: Female
  Weight: 54 kg

DRUGS (7)
  1. AMAREL [Suspect]
     Indication: DIABETES MELLITUS
     Route: 048
     Dates: end: 20051112
  2. AMAREL [Suspect]
     Route: 048
     Dates: end: 20051227
  3. CIPRALAN [Suspect]
     Indication: ARRHYTHMIA
     Route: 048
  4. LASILIX RETARD [Concomitant]
     Indication: CARDIAC FAILURE
     Route: 048
  5. TAREG [Concomitant]
     Indication: ESSENTIAL HYPERTENSION
     Route: 048
  6. DIGOXIN [Concomitant]
     Indication: CARDIAC FAILURE
     Dosage: DOSE UNIT: UNITS
     Route: 048
  7. TRANXENE [Concomitant]
     Indication: ANXIETY
     Route: 048

REACTIONS (3)
  - DRUG INTERACTION [None]
  - HYPOGLYCAEMIA [None]
  - LOSS OF CONSCIOUSNESS [None]
